FAERS Safety Report 4333233-3 (Version None)
Quarter: 2004Q2

REPORT INFORMATION
  Report Type: 
  Country: None (occurrence: None)
  Receive Date: 20040401
  Receipt Date: 20040324
  Transmission Date: 20050107
  Serious: Yes (Hospitalization)
  Sender: FDA-Public Use
  Company Number: 2004UW05779

PATIENT
  Age: 51 Year
  Sex: Female

DRUGS (19)
  1. CRESTOR [Suspect]
     Indication: HYPERCHOLESTEROLAEMIA
  2. RAPAMUNE [Concomitant]
  3. CELLCEPT [Concomitant]
  4. SODIUM BICARBONATE [Concomitant]
  5. PREDNISONE [Concomitant]
  6. PAXIL [Concomitant]
  7. NEPHROCAPS [Concomitant]
  8. LASIX [Concomitant]
  9. ZAROXOLYN [Concomitant]
  10. BENADRYL ^PARKE DAVIS^ [Concomitant]
  11. ZANTAC [Concomitant]
  12. PROTONIX [Concomitant]
  13. CALCITRIOL [Concomitant]
  14. ZETIA [Concomitant]
  15. CARAFATE [Concomitant]
  16. METHADONE HCL [Concomitant]
  17. HYDROCODONE [Concomitant]
  18. DIFLUCAN [Concomitant]
  19. VALIUM [Concomitant]

REACTIONS (12)
  - BLOOD CREATINE PHOSPHOKINASE INCREASED [None]
  - CACHEXIA [None]
  - DIALYSIS [None]
  - DIARRHOEA [None]
  - MUSCLE ATROPHY [None]
  - NAUSEA [None]
  - PYELONEPHRITIS [None]
  - PYREXIA [None]
  - RENAL FAILURE ACUTE [None]
  - RENAL TUBULAR NECROSIS [None]
  - URINARY TRACT INFECTION FUNGAL [None]
  - VOMITING [None]
